FAERS Safety Report 8799949 (Version 1)
Quarter: 2012Q4

REPORT INFORMATION
  Report Type: Spontaneous
  Country: US (occurrence: None)
  Receive Date: 20120918
  Receipt Date: 20120918
  Transmission Date: 20130627
  Serious: No
  Sender: FDA-Public Use
  Company Number: None

PATIENT

DRUGS (1)
  1. TOPAMAX [Suspect]
     Dosage: 1 tablet before bed

REACTIONS (4)
  - Paraesthesia [None]
  - Confusional state [None]
  - Asthenia [None]
  - Fatigue [None]
